FAERS Safety Report 11285498 (Version 1)
Quarter: 2015Q3

REPORT INFORMATION
  Report Type: Spontaneous
  Country: US (occurrence: US)
  Receive Date: 20150720
  Receipt Date: 20150720
  Transmission Date: 20151125
  Serious: No
  Sender: FDA-Public Use
  Company Number: CHPA2015US006795

PATIENT
  Age: 90 Year
  Sex: Female

DRUGS (2)
  1. VOLTAREN [Suspect]
     Active Substance: DICLOFENAC SODIUM
     Indication: ARTHRITIS
     Dosage: SIZE OF A DIME EACH AREA, QD
     Route: 061
     Dates: start: 201503, end: 20150528
  2. VOLTAREN [Suspect]
     Active Substance: DICLOFENAC SODIUM
     Indication: SPONDYLITIS

REACTIONS (5)
  - Malaise [Recovered/Resolved]
  - Wrong technique in product usage process [Unknown]
  - Sluggishness [Recovered/Resolved]
  - Drug administered at inappropriate site [Unknown]
  - Off label use [Unknown]

NARRATIVE: CASE EVENT DATE: 201503
